FAERS Safety Report 14128179 (Version 1)
Quarter: 2017Q4

REPORT INFORMATION
  Report Type: Report from Study
  Country: GT (occurrence: GT)
  Receive Date: 20171026
  Receipt Date: 20171026
  Transmission Date: 20180321
  Serious: Yes (Other)
  Sender: FDA-Public Use
  Company Number: PHHY2017GT156599

PATIENT
  Age: 53 Year
  Sex: Female

DRUGS (2)
  1. VYMADA [Suspect]
     Active Substance: SACUBITRIL\VALSARTAN
     Indication: PRODUCT USED FOR UNKNOWN INDICATION
     Dosage: 50 MG, UNK
     Route: 065
  2. VYMADA [Suspect]
     Active Substance: SACUBITRIL\VALSARTAN
     Dosage: 100 MG, UNK
     Route: 065

REACTIONS (5)
  - General physical health deterioration [Unknown]
  - Blood pressure decreased [Unknown]
  - Cardiac failure [Unknown]
  - Malaise [Unknown]
  - Gait disturbance [Unknown]
